FAERS Safety Report 11169400 (Version 1)
Quarter: 2015Q2

REPORT INFORMATION
  Report Type: Spontaneous
  Country: US (occurrence: US)
  Receive Date: 20150605
  Receipt Date: 20150605
  Transmission Date: 20150821
  Serious: No
  Sender: FDA-Public Use
  Company Number: US-GLAXOSMITHKLINE-US2015076488

PATIENT
  Age: 41 Year
  Sex: Female

DRUGS (1)
  1. BECONASE AQ [Suspect]
     Active Substance: BECLOMETHASONE DIPROPIONATE MONOHYDRATE
     Indication: SINUSITIS
     Dosage: 2 DF, QD
     Route: 045
     Dates: start: 20150309

REACTIONS (4)
  - Nasal dryness [Recovered/Resolved]
  - Nasal discomfort [Recovered/Resolved]
  - Drug administration error [Unknown]
  - Epistaxis [Recovered/Resolved]

NARRATIVE: CASE EVENT DATE: 20150309
